FAERS Safety Report 7445260-8 (Version None)
Quarter: 2011Q2

REPORT INFORMATION
  Report Type: 
  Country: None (occurrence: None)
  Receive Date: 20110429
  Receipt Date: 20110401
  Transmission Date: 20111010
  Serious: Yes (Hospitalization, Other)
  Sender: FDA-Public Use
  Company Number: US-BAYER-2010-003056

PATIENT
  Age: 19 Year
  Sex: Female
  Weight: 59 kg

DRUGS (5)
  1. NSAID'S [Concomitant]
  2. YAZ [Suspect]
     Indication: CONTRACEPTION
     Dosage: UNK UNK, QD
     Dates: start: 20080601, end: 20080901
  3. LUPRON [Concomitant]
     Indication: ENDOMETRIOSIS
     Dosage: 3.75 MG, Q1MON
     Route: 030
     Dates: start: 20090107
  4. TOPAMAX [Concomitant]
  5. ANTIBIOTICS [Concomitant]

REACTIONS (4)
  - ABDOMINAL PAIN [None]
  - CHOLECYSTITIS CHRONIC [None]
  - CHOLELITHIASIS [None]
  - CHOLECYSTECTOMY [None]
